FAERS Safety Report 5775348-9 (Version None)
Quarter: 2008Q2

REPORT INFORMATION
  Report Type: 
  Country: None (occurrence: None)
  Receive Date: 20080616
  Receipt Date: 20080616
  Transmission Date: 20081010
  Serious: Yes (Death)
  Sender: FDA-Public Use
  Company Number: None

PATIENT
  Age: 66 Year
  Sex: Female
  Weight: 72.5755 kg

DRUGS (1)
  1. HYDROMORPHONE HCL [Suspect]
     Indication: PROCEDURAL PAIN
     Dosage: DILAUDID 0.2 MG EVERY 10 MINUTES IV BOLUS
     Route: 040
     Dates: start: 20080611, end: 20080611

REACTIONS (1)
  - UNRESPONSIVE TO STIMULI [None]
